FAERS Safety Report 9852393 (Version 1)
Quarter: 2014Q1

REPORT INFORMATION
  Report Type: Spontaneous
  Country: US (occurrence: CZ)
  Receive Date: 20140129
  Receipt Date: 20140129
  Transmission Date: 20141002
  Serious: Yes (Hospitalization)
  Sender: FDA-Public Use
  Company Number: CZ-FRI-1000053160

PATIENT
  Age: 72 Year
  Sex: Male

DRUGS (2)
  1. ROFLUMILAST [Suspect]
     Indication: CHRONIC OBSTRUCTIVE PULMONARY DISEASE
     Dosage: 0.5 DF
     Route: 048
     Dates: start: 20130624, end: 20130701
  2. ROFLUMILAST [Suspect]
     Indication: CHRONIC OBSTRUCTIVE PULMONARY DISEASE
     Dosage: 1 DF
     Route: 048
     Dates: start: 20130702, end: 20130718

REACTIONS (4)
  - Abasia [Recovered/Resolved]
  - Discomfort [Recovered/Resolved]
  - Disorientation [Recovered/Resolved]
  - Off label use [Recovered/Resolved]
